FAERS Safety Report 7820994-1 (Version None)
Quarter: 2011Q4

REPORT INFORMATION
  Report Type: 
  Country: None (occurrence: None)
  Receive Date: 20111018
  Receipt Date: 20111014
  Transmission Date: 20120403
  Serious: Yes (Other)
  Sender: FDA-Public Use
  Company Number: US-BRISTOL-MYERS SQUIBB COMPANY-16162455

PATIENT
  Age: 14 Year
  Sex: Male

DRUGS (3)
  1. REYATAZ [Suspect]
     Indication: HIV INFECTION
  2. EPZICOM [Concomitant]
  3. NORVIR [Concomitant]

REACTIONS (3)
  - JAW FRACTURE [None]
  - DRUG DOSE OMISSION [None]
  - ACCIDENT [None]
